FAERS Safety Report 6027206-2 (Version None)
Quarter: 2009Q1

REPORT INFORMATION
  Report Type: 
  Country: None (occurrence: None)
  Receive Date: 20090105
  Receipt Date: 20081231
  Transmission Date: 20090719
  Serious: Yes (Hospitalization)
  Sender: FDA-Public Use
  Company Number: A0762002A

PATIENT
  Age: 59 Year
  Sex: Female

DRUGS (10)
  1. ALLI [Suspect]
     Indication: WEIGHT LOSS DIET
     Route: 048
     Dates: start: 20081211, end: 20081213
  2. EFFEXOR [Concomitant]
     Indication: FIBROMYALGIA
     Route: 048
  3. CRESTOR [Concomitant]
     Route: 048
  4. IMITREX [Concomitant]
     Indication: MIGRAINE
  5. MULTI-VITAMIN [Concomitant]
     Indication: VITAMIN SUPPLEMENTATION
     Route: 048
  6. VITAMIN B COMPLEX CAP [Concomitant]
     Indication: VITAMIN SUPPLEMENTATION
     Route: 048
  7. FISH OIL [Concomitant]
     Route: 048
  8. CALCIUM SUPPLEMENT [Concomitant]
     Route: 048
  9. CO Q 10 [Concomitant]
  10. CLARITIN [Concomitant]
     Indication: MULTIPLE ALLERGIES

REACTIONS (6)
  - DEHYDRATION [None]
  - DIARRHOEA [None]
  - GLOBAL AMNESIA [None]
  - HEADACHE [None]
  - NAUSEA [None]
  - VOMITING [None]
